FAERS Safety Report 5786776-X (Version None)
Quarter: 2008Q2

REPORT INFORMATION
  Report Type: 
  Country: None (occurrence: None)
  Receive Date: 20080618
  Receipt Date: 20080609
  Transmission Date: 20081010
  Serious: Yes (Hospitalization)
  Sender: FDA-Public Use
  Company Number: ADE2008-0207

PATIENT
  Age: 56 Year
  Sex: Male

DRUGS (3)
  1. SIMVASTATIN [Suspect]
     Dosage: 40 MG, PO
     Route: 048
  2. CLOPIDOGREL [Suspect]
     Indication: ANTICOAGULANT THERAPY
  3. ASPIRIN [Suspect]
     Indication: ANTICOAGULANT THERAPY

REACTIONS (4)
  - COMPARTMENT SYNDROME [None]
  - ERYTHEMA NODOSUM [None]
  - MUSCLE HAEMORRHAGE [None]
  - MYOSITIS [None]
